FAERS Safety Report 4638858-3 (Version None)
Quarter: 2005Q2

REPORT INFORMATION
  Report Type: 
  Country: None (occurrence: None)
  Receive Date: 20050419
  Receipt Date: 20050407
  Transmission Date: 20051028
  Serious: Yes (Hospitalization)
  Sender: FDA-Public Use
  Company Number: FR-JNJFOC-20050402203

PATIENT
  Age: 70 Year
  Sex: Male

DRUGS (6)
  1. REMICADE [Suspect]
     Route: 042
  2. REMICADE [Suspect]
     Indication: ANKYLOSING SPONDYLITIS
     Route: 042
  3. CORTANCYL [Concomitant]
  4. SPECIAFOLDINE [Concomitant]
  5. METHOTREXATE [Concomitant]
  6. NEXIUM [Concomitant]

REACTIONS (1)
  - OESOPHAGEAL CARCINOMA [None]
